FAERS Safety Report 8549970-0 (Version None)
Quarter: 2012Q3

REPORT INFORMATION
  Report Type: 
  Country: None (occurrence: None)
  Receive Date: 20120730
  Receipt Date: 20120719
  Transmission Date: 20120928
  Serious: Yes (Hospitalization)
  Sender: FDA-Public Use
  Company Number: BR-ASTRAZENECA-2012SE51246

PATIENT
  Age: 95 Year
  Sex: Female

DRUGS (7)
  1. NEXIUM [Suspect]
     Route: 048
     Dates: start: 20120401
  2. ANTIBIOTICS [Suspect]
     Route: 065
  3. NEXIUM [Suspect]
     Indication: GASTRITIS
     Route: 048
     Dates: start: 20120101, end: 20120401
  4. NEXIUM [Suspect]
     Indication: OESOPHAGITIS
     Route: 048
     Dates: start: 20120101, end: 20120401
  5. NEXIUM [Suspect]
     Indication: HIATUS HERNIA
     Route: 048
     Dates: start: 20120101, end: 20120401
  6. NEXIUM [Suspect]
     Route: 048
     Dates: start: 20120401
  7. NEXIUM [Suspect]
     Route: 048
     Dates: start: 20120401

REACTIONS (3)
  - DRUG INEFFECTIVE [None]
  - GASTRITIS [None]
  - PNEUMONIA [None]
